FAERS Safety Report 16760112 (Version 2)
Quarter: 2020Q2

REPORT INFORMATION
  Report Type: Spontaneous
  Country: CA (occurrence: CA)
  Receive Date: 20190830
  Receipt Date: 20200409
  Transmission Date: 20200713
  Serious: Yes (Disabling)
  Sender: FDA-Public Use
  Company Number: CA-PFIZER INC-2019373411

PATIENT
  Age: 78 Year
  Sex: Female

DRUGS (1)
  1. ZOLEDRONIC ACID [Suspect]
     Active Substance: ZOLEDRONIC ACID
     Dosage: 5 MG, UNK
     Route: 042

REACTIONS (4)
  - Product use in unapproved indication [Unknown]
  - Peripheral swelling [Recovered/Resolved]
  - Gait disturbance [Recovered/Resolved]
  - Off label use [Unknown]
